FAERS Safety Report 8413927-0 (Version None)
Quarter: 2012Q2

REPORT INFORMATION
  Report Type: 
  Country: None (occurrence: None)
  Receive Date: 20120605
  Receipt Date: 20120529
  Transmission Date: 20120825
  Serious: No
  Sender: FDA-Public Use
  Company Number: JP-JNJFOC-20120212210

PATIENT
  Sex: Male

DRUGS (8)
  1. ADVAIR DISKUS 100/50 [Concomitant]
     Indication: ASTHMA
     Route: 055
     Dates: start: 20080918
  2. CLARITHROMYCIN [Suspect]
     Indication: INFECTIOUS PLEURAL EFFUSION
     Route: 048
     Dates: start: 20111124, end: 20111209
  3. ZOSYN [Concomitant]
     Indication: INFECTIOUS PLEURAL EFFUSION
     Route: 041
     Dates: start: 20111124, end: 20111125
  4. DIOVAN [Concomitant]
     Indication: HYPERTENSION
     Route: 048
  5. MUCODYNE [Concomitant]
     Indication: INFECTIOUS PLEURAL EFFUSION
     Route: 048
     Dates: start: 20111124, end: 20111209
  6. SIMVASTATIN [Concomitant]
     Indication: HYPERLIPIDAEMIA
     Route: 065
  7. POLARAMINE [Suspect]
     Indication: URTICARIA
     Route: 065
     Dates: start: 20111209
  8. DORIPENEM MONOHYDRATE [Suspect]
     Indication: INFECTIOUS PLEURAL EFFUSION
     Route: 041
     Dates: start: 20111126, end: 20111209

REACTIONS (2)
  - OLIGURIA [None]
  - URTICARIA [None]
